FAERS Safety Report 19836287 (Version 2)
Quarter: 2021Q3

REPORT INFORMATION
  Report Type: Spontaneous
  Country: US (occurrence: US)
  Receive Date: 20210916
  Receipt Date: 20210923
  Transmission Date: 20211014
  Serious: Yes (Hospitalization, Other)
  Sender: FDA-Public Use
  Company Number: US-AUROBINDO-AUR-APL-2021-039031

PATIENT
  Age: 25 Year
  Sex: Female

DRUGS (3)
  1. NIMODIPINE. [Suspect]
     Active Substance: NIMODIPINE
     Indication: REVERSIBLE CEREBRAL VASOCONSTRICTION SYNDROME
     Dosage: 60 MILLIGRAM, EVERY FOUR HOUR
     Route: 048
  2. ROPIVACAINE. [Concomitant]
     Active Substance: ROPIVACAINE HYDROCHLORIDE
     Indication: NERVE BLOCK
     Dosage: 8 MILLILITER
     Route: 065
  3. VERAPAMIL HYDROCHLORIDE. [Suspect]
     Active Substance: VERAPAMIL HYDROCHLORIDE
     Indication: REVERSIBLE CEREBRAL VASOCONSTRICTION SYNDROME
     Dosage: UNK
     Route: 013

REACTIONS (1)
  - Drug ineffective for unapproved indication [Unknown]
